FAERS Safety Report 20407505 (Version 2)
Quarter: 2022Q1

REPORT INFORMATION
  Report Type: Spontaneous
  Country: GB (occurrence: GB)
  Receive Date: 20220131
  Receipt Date: 20220216
  Transmission Date: 20220424
  Serious: Yes (Hospitalization, Other)
  Sender: FDA-Public Use
  Company Number: None

PATIENT
  Age: 35 Year
  Sex: Female
  Weight: 72.6 kg

DRUGS (9)
  1. METHOTREXATE SODIUM [Suspect]
     Active Substance: METHOTREXATE SODIUM
     Indication: Psoriasis
     Dosage: 25 MG, WEEKLY
     Route: 048
  2. ADALIMUMAB [Suspect]
     Active Substance: ADALIMUMAB
     Indication: Psoriasis
     Dosage: 40MG EVERY 2 WEEKS
     Route: 058
  3. CHLORAMPHENICOL [Suspect]
     Active Substance: CHLORAMPHENICOL
     Indication: Conjunctivitis bacterial
     Dosage: UNK, 2X/DAY
     Route: 031
     Dates: start: 20220111, end: 20220121
  4. CALGEL [CALCITRIOL;CALCIUM CARBONATE;ZINC] [Concomitant]
     Indication: Ill-defined disorder
     Dosage: UNK
  5. CHLORPHENIRAMINE MALEATE [Concomitant]
     Active Substance: CHLORPHENIRAMINE MALEATE
     Dosage: UNK
  6. FOLIC ACID [Concomitant]
     Active Substance: FOLIC ACID
     Indication: Ill-defined disorder
     Dosage: UNK
  7. LANSOPRAZOLE [Concomitant]
     Active Substance: LANSOPRAZOLE
     Dosage: UNK
  8. LEVOTHYROXINE SODIUM [Concomitant]
     Active Substance: LEVOTHYROXINE SODIUM
     Dosage: UNK
  9. PREDNISOLONE [Concomitant]
     Active Substance: PREDNISOLONE
     Dosage: UNK

REACTIONS (3)
  - Pancytopenia [Unknown]
  - Neutropenic sepsis [Unknown]
  - C-reactive protein increased [Unknown]

NARRATIVE: CASE EVENT DATE: 20220112
